FAERS Safety Report 12905254 (Version 3)
Quarter: 2017Q1

REPORT INFORMATION
  Report Type: Spontaneous
  Country: US (occurrence: US)
  Receive Date: 20161102
  Receipt Date: 20170117
  Transmission Date: 20170428
  Serious: Yes (Death, Other)
  Sender: FDA-Public Use
  Company Number: US-BRISTOL-MYERS SQUIBB COMPANY-BMS-2016-090352

PATIENT
  Sex: Male

DRUGS (4)
  1. OPDIVO [Suspect]
     Active Substance: NIVOLUMAB
     Indication: BRCA2 GENE MUTATION
     Route: 065
  2. YERVOY [Suspect]
     Active Substance: IPILIMUMAB
     Indication: BRCA2 GENE MUTATION
     Route: 065
  3. YERVOY [Suspect]
     Active Substance: IPILIMUMAB
     Indication: PANCREATIC CARCINOMA
     Dosage: UNK UNK, Q3WK
     Route: 042
     Dates: start: 20160907, end: 20161102
  4. OPDIVO [Suspect]
     Active Substance: NIVOLUMAB
     Indication: PANCREATIC CARCINOMA
     Dosage: UNK UNK, Q3WK
     Route: 042
     Dates: start: 20160907, end: 20161102

REACTIONS (2)
  - Malignant neoplasm progression [Fatal]
  - Product use issue [Unknown]
